FAERS Safety Report 9726433 (Version 1)
Quarter: 2013Q4

REPORT INFORMATION
  Report Type: Spontaneous
  Country: US (occurrence: None)
  Receive Date: 20131202
  Receipt Date: 20131202
  Transmission Date: 20140711
  Serious: No
  Sender: FDA-Public Use
  Company Number: None

PATIENT
  Age: 36 Year
  Sex: Male

DRUGS (2)
  1. ATRIPLA [Suspect]
     Indication: HIV INFECTION
  2. PHENYTOIN [Suspect]
     Indication: CONVULSION

REACTIONS (7)
  - Convulsion [None]
  - Lethargy [None]
  - Condition aggravated [None]
  - Dysarthria [None]
  - Mental status changes [None]
  - Paraesthesia [None]
  - Tremor [None]
